FAERS Safety Report 8953807 (Version 1)
Quarter: 2012Q4

REPORT INFORMATION
  Report Type: 
  Country: US (occurrence: US)
  Receive Date: 20121206
  Receipt Date: 20121206
  Transmission Date: 20130627
  Serious: No
  Sender: FDA-Public Use
  Company Number: US-009507513-1212USA002278

PATIENT
  Sex: Female

DRUGS (1)
  1. LOTRIMIN ULTRA [Suspect]
     Indication: TINEA PEDIS
     Dosage: UNK, bid
     Route: 061
     Dates: start: 20120723, end: 20120731

REACTIONS (1)
  - Rash [Unknown]
